FAERS Safety Report 17602637 (Version 2)
Quarter: 2020Q2

REPORT INFORMATION
  Report Type: Report from Study
  Country: None (occurrence: KR)
  Receive Date: 20200330
  Receipt Date: 20200401
  Transmission Date: 20200713
  Serious: Yes (Hospitalization)
  Sender: FDA-Public Use
  Company Number: KR-ABBVIE-20K-090-3310789-00

PATIENT
  Age: 75 Year
  Sex: Male
  Weight: 53 kg

DRUGS (2)
  1. HUMIRA [Suspect]
     Active Substance: ADALIMUMAB
     Indication: UVEITIS
     Dosage: ONCE
     Route: 058
     Dates: start: 20180509, end: 20180509
  2. HUMIRA [Suspect]
     Active Substance: ADALIMUMAB
     Route: 058
     Dates: start: 20180516

REACTIONS (3)
  - Ligament injury [Recovering/Resolving]
  - Vascular injury [Recovering/Resolving]
  - Injury [Unknown]

NARRATIVE: CASE EVENT DATE: 20200309
